FAERS Safety Report 22744576 (Version 4)
Quarter: 2024Q1

REPORT INFORMATION
  Report Type: Report from Study
  Country: JP (occurrence: JP)
  Receive Date: 20230724
  Receipt Date: 20240104
  Transmission Date: 20240410
  Serious: Yes (Other)
  Sender: FDA-Public Use
  Company Number: JP-SA-2023SA222465

PATIENT
  Age: 60 Year
  Sex: Female

DRUGS (3)
  1. DUPIXENT [Suspect]
     Active Substance: DUPILUMAB
     Indication: Asthma
     Dosage: UNK UNK, QOW
     Route: 058
  2. DUPIXENT [Suspect]
     Active Substance: DUPILUMAB
     Dosage: UNK
     Route: 058
  3. UNSPECIFIED INGREDIENT [Suspect]
     Active Substance: UNSPECIFIED INGREDIENT
     Indication: Asthma
     Route: 065

REACTIONS (10)
  - Adrenocortical insufficiency acute [Unknown]
  - Eosinophilic pneumonia [Unknown]
  - Chest discomfort [Unknown]
  - Asthma exercise induced [Unknown]
  - Chest pain [Recovering/Resolving]
  - Cortisol abnormal [Unknown]
  - Dyspnoea [Unknown]
  - Cushingoid [Unknown]
  - Increased appetite [Unknown]
  - Injection site pain [Unknown]
